FAERS Safety Report 21051169 (Version 1)
Quarter: 2022Q3

REPORT INFORMATION
  Report Type: Spontaneous
  Country: US (occurrence: US)
  Receive Date: 20220707
  Receipt Date: 20220707
  Transmission Date: 20221027
  Serious: No
  Sender: FDA-Public Use
  Company Number: US-UNITED THERAPEUTICS-UNT-2022-014207

PATIENT
  Age: 71 Year
  Sex: Female
  Weight: 77.098 kg

DRUGS (3)
  1. REMODULIN [Suspect]
     Active Substance: TREPROSTINIL
     Indication: Pulmonary arterial hypertension
     Dosage: UNK, CONTINUING
     Route: 041
     Dates: start: 20100503
  2. REMODULIN [Suspect]
     Active Substance: TREPROSTINIL
     Dosage: 0.070 ?G/KG, CONTINUING
     Route: 041
  3. OPSUMIT [Concomitant]
     Active Substance: MACITENTAN
     Indication: Product used for unknown indication
     Route: 065

REACTIONS (4)
  - Fall [Recovered/Resolved with Sequelae]
  - Foot fracture [Unknown]
  - Limb asymmetry [Unknown]
  - Localised infection [Unknown]

NARRATIVE: CASE EVENT DATE: 20220618
